FAERS Safety Report 8383985-0 (Version None)
Quarter: 2012Q2

REPORT INFORMATION
  Report Type: 
  Country: None (occurrence: None)
  Receive Date: 20120524
  Receipt Date: 20120514
  Transmission Date: 20120825
  Serious: Yes (Other)
  Sender: FDA-Public Use
  Company Number: US-MPIJNJ-2012-03397

PATIENT

DRUGS (4)
  1. VELCADE [Suspect]
     Dosage: 1.3 MG/M2, CYCLIC
     Route: 040
  2. VELCADE [Suspect]
     Indication: ACUTE MYELOID LEUKAEMIA
     Dosage: 0.7 MG/M2, CYCLIC
     Route: 040
  3. DECITABINE [Suspect]
     Indication: ACUTE MYELOID LEUKAEMIA
     Dosage: 20 MG/M2, CYCLIC
     Route: 042
  4. VELCADE [Suspect]
     Dosage: 1.0 MG/M2, CYCLIC
     Route: 040

REACTIONS (1)
  - GASTROINTESTINAL TOXICITY [None]
